FAERS Safety Report 16347457 (Version 1)
Quarter: 2019Q2

REPORT INFORMATION
  Report Type: Spontaneous
  Country: US (occurrence: US)
  Receive Date: 20190523
  Receipt Date: 20190523
  Transmission Date: 20190711
  Serious: Yes (Death, Hospitalization)
  Sender: FDA-Public Use
  Company Number: US-TEVA-2019-US-1052785

PATIENT
  Sex: Female

DRUGS (7)
  1. DIGOXIN. [Suspect]
     Active Substance: DIGOXIN
     Indication: PRODUCT USED FOR UNKNOWN INDICATION
     Route: 048
  2. FAT EMULSION NOS [Interacting]
     Active Substance: EGG PHOSPHOLIPIDS\SAFFLOWER OIL\SOYBEAN OIL
     Indication: CARDIOGENIC SHOCK
     Dosage: 1.5 ML/KG
     Route: 040
  3. DILTIAZEM. [Suspect]
     Active Substance: DILTIAZEM
     Indication: PRODUCT USED FOR UNKNOWN INDICATION
     Dosage: EXTENDED-RELEASE
     Route: 048
  4. INSULIN [Interacting]
     Active Substance: INSULIN NOS
     Indication: HYPERINSULINAEMIA
     Dosage: REGULAR BOLUS OF 80 UNITS (1 UNIT/KG), FOLLOWED BY AN INFUSION OF 80 UNITS/HOUR (1 UNIT/KG/HOUR)
     Route: 050
  5. INSULIN [Interacting]
     Active Substance: INSULIN NOS
     Indication: HYPERINSULINAEMIA
     Dosage: UPTITRATION TO 180 UNITS/HOUR (2.25 UNITS/KG/HOUR)
     Route: 050
  6. FAT EMULSION NOS [Interacting]
     Active Substance: EGG PHOSPHOLIPIDS\SAFFLOWER OIL\SOYBEAN OIL
     Dosage: FOLLOWED BY AN INFUSION OF 20 ML/MIN (0.25 ML/KG/MIN) FOR A TOTAL OF 3.5 HOURS; AN ESTIMATED TOTA...
     Route: 041
  7. ALPRAZOLAM. [Suspect]
     Active Substance: ALPRAZOLAM
     Indication: PRODUCT USED FOR UNKNOWN INDICATION
     Route: 048

REACTIONS (10)
  - Renal failure [Fatal]
  - Cardiogenic shock [Fatal]
  - Hyperlipidaemia [Fatal]
  - Cardiac arrest [Fatal]
  - Multiple organ dysfunction syndrome [Fatal]
  - Drug interaction [Fatal]
  - Metabolic acidosis [Fatal]
  - Thrombosis in device [Fatal]
  - Overdose [Fatal]
  - Toxicity to various agents [Fatal]
